FAERS Safety Report 14556115 (Version 2)
Quarter: 2018Q2

REPORT INFORMATION
  Report Type: Spontaneous
  Country: FR (occurrence: FR)
  Receive Date: 20180221
  Receipt Date: 20180528
  Transmission Date: 20180711
  Serious: Yes (Death)
  Sender: FDA-Public Use
  Company Number: FR-ASTRAZENECA-2018SE19345

PATIENT
  Age: 48 Year
  Sex: Female
  Weight: 85 kg

DRUGS (14)
  1. CALCIDOSE VITAMINE D [Concomitant]
     Active Substance: CALCIUM\CHOLECALCIFEROL
  2. OFLOXACIN. [Concomitant]
     Active Substance: OFLOXACIN
     Route: 065
     Dates: start: 20171211, end: 20171217
  3. SERETIDE [Concomitant]
     Active Substance: FLUTICASONE PROPIONATE\SALMETEROL XINAFOATE
  4. PRIMPERAN [Concomitant]
     Active Substance: METOCLOPRAMIDE HYDROCHLORIDE
     Route: 065
  5. ZOPHREN [Concomitant]
     Active Substance: ONDANSETRON
  6. DIFFU K, [Concomitant]
     Route: 065
  7. IMOVANE [Suspect]
     Active Substance: ZOPICLONE
     Route: 065
  8. LANSOPRAZOLE. [Concomitant]
     Active Substance: LANSOPRAZOLE
  9. METHADONE [Interacting]
     Active Substance: METHADONE HYDROCHLORIDE
     Indication: PAIN
     Route: 065
     Dates: start: 201708
  10. LAROXYL [Interacting]
     Active Substance: AMITRIPTYLINE HYDROCHLORIDE
     Indication: PAIN
     Route: 065
  11. GABAPENTIN. [Concomitant]
     Active Substance: GABAPENTIN
  12. LOVENOX [Concomitant]
     Active Substance: ENOXAPARIN SODIUM
  13. TAGRISSO [Suspect]
     Active Substance: OSIMERTINIB
     Indication: METASTATIC BRONCHIAL CARCINOMA
     Dosage: 1 DOSAGE FORM
     Route: 048
     Dates: start: 20171207, end: 20180105
  14. SPASFON (PHLOROGLUCINOL, TRIMETHYLPHLOROGLUCINOL) [Concomitant]
     Active Substance: PHLOROGLUCINOL\1,3,5-TRIMETHOXYBENZENE

REACTIONS (4)
  - Cardiac failure [Fatal]
  - Ventricular tachycardia [Fatal]
  - Electrocardiogram QT prolonged [Fatal]
  - Dyspnoea [Fatal]

NARRATIVE: CASE EVENT DATE: 201712
